FAERS Safety Report 6374359-2 (Version None)
Quarter: 2009Q3

REPORT INFORMATION
  Report Type: 
  Country: None (occurrence: None)
  Receive Date: 20090924
  Receipt Date: 20080915
  Transmission Date: 20100115
  Serious: No
  Sender: FDA-Public Use
  Company Number: A0744134A

PATIENT
  Age: 46 Year
  Sex: Male
  Weight: 81.8 kg

DRUGS (8)
  1. EPZICOM [Suspect]
     Indication: HIV INFECTION
     Dosage: 1TAB PER DAY
     Route: 048
     Dates: start: 20080814, end: 20080821
  2. SUSTIVA [Concomitant]
  3. NITROGLYCERIN [Concomitant]
  4. ZANTAC [Concomitant]
  5. NEURONTIN [Concomitant]
  6. HYDROCHLOROTHIAZIDE [Concomitant]
  7. RISPERDAL [Concomitant]
  8. COMPAZINE [Concomitant]

REACTIONS (1)
  - CHEST PAIN [None]
